FAERS Safety Report 13233336 (Version 1)
Quarter: 2017Q1

REPORT INFORMATION
  Report Type: Spontaneous
  Country: US (occurrence: US)
  Receive Date: 20170214
  Receipt Date: 20170214
  Transmission Date: 20170428
  Serious: Yes (Hospitalization)
  Sender: FDA-Public Use
  Company Number: None

PATIENT
  Age: 45 Year
  Sex: Male

DRUGS (7)
  1. DDAVP [Concomitant]
     Active Substance: DESMOPRESSIN ACETATE
  2. CORTISOL [Concomitant]
     Active Substance: HYDROCORTISONE
  3. SYNTHROID [Concomitant]
     Active Substance: LEVOTHYROXINE SODIUM
  4. ALLOPURINOL. [Concomitant]
     Active Substance: ALLOPURINOL
  5. COLCHICINE. [Concomitant]
     Active Substance: COLCHICINE
  6. TESTERONE [Concomitant]
     Active Substance: TESTOSTERONE
  7. ERIVEDGE [Suspect]
     Active Substance: VISMODEGIB
     Indication: BASAL CELL CARCINOMA
     Route: 048
     Dates: start: 20160715

REACTIONS (7)
  - Weight decreased [None]
  - Cardiac disorder [None]
  - Fall [None]
  - Chest injury [None]
  - Pneumothorax [None]
  - Urinary tract infection [None]
  - Ageusia [None]

NARRATIVE: CASE EVENT DATE: 201612
